FAERS Safety Report 6120799-6 (Version None)
Quarter: 2009Q1

REPORT INFORMATION
  Report Type: 
  Country: None (occurrence: None)
  Receive Date: 20090313
  Receipt Date: 20090127
  Transmission Date: 20090719
  Serious: Yes (Other)
  Sender: FDA-Public Use
  Company Number: 09-047

PATIENT
  Age: 60 Year
  Sex: Female

DRUGS (1)
  1. ALEVE [Suspect]
     Indication: EPICONDYLITIS
     Dosage: 440 MG, DAILY, ORAL
     Route: 048
     Dates: start: 20090116, end: 20090121

REACTIONS (1)
  - HAEMATOCHEZIA [None]
